FAERS Safety Report 11115617 (Version 1)
Quarter: 2015Q2

REPORT INFORMATION
  Report Type: Spontaneous
  Country: US (occurrence: None)
  Receive Date: 20150513
  Receipt Date: 20150513
  Transmission Date: 20150821
  Serious: Yes (Hospitalization)
  Sender: FDA-Public Use
  Company Number: US-H14001-15-00659

PATIENT
  Age: 13 Year
  Sex: Female

DRUGS (4)
  1. PERAMPANEL [Suspect]
     Active Substance: PERAMPANEL
     Indication: EPILEPSY
  2. LAMOTRIGINE. [Concomitant]
     Active Substance: LAMOTRIGINE
  3. VALPROATE [Suspect]
     Active Substance: VALPROATE SODIUM
     Indication: EPILEPSY
  4. VALPROATE [Suspect]
     Active Substance: VALPROATE SODIUM
     Indication: EPILEPSY

REACTIONS (8)
  - Hypotension [None]
  - Seizure [None]
  - Blood immunoglobulin G decreased [None]
  - Septic shock [None]
  - Acute respiratory distress syndrome [None]
  - Acute kidney injury [None]
  - Metabolic acidosis [None]
  - Drug reaction with eosinophilia and systemic symptoms [None]
